FAERS Safety Report 15963635 (Version 1)
Quarter: 2019Q1

REPORT INFORMATION
  Report Type: Spontaneous
  Country: US (occurrence: US)
  Receive Date: 20190214
  Receipt Date: 20190214
  Transmission Date: 20190417
  Serious: Yes (Other)
  Sender: FDA-Public Use
  Company Number: US-IMPAX LABORATORIES, LLC-2019-IPXL-00465

PATIENT
  Age: 78 Year
  Sex: Female

DRUGS (7)
  1. FENOFIBRATE. [Suspect]
     Active Substance: FENOFIBRATE
     Indication: BLOOD CHOLESTEROL INCREASED
     Dosage: 1 DOSAGE FORM, DAILY
     Route: 048
     Dates: start: 2001
  2. LOVASTATIN. [Suspect]
     Active Substance: LOVASTATIN
     Indication: BLOOD CHOLESTEROL INCREASED
     Dosage: 20 MILLIGRAM
     Route: 065
  3. LOVASTATIN. [Suspect]
     Active Substance: LOVASTATIN
     Indication: BLOOD TRIGLYCERIDES INCREASED
  4. PRAVASTATIN. [Suspect]
     Active Substance: PRAVASTATIN
     Indication: PRODUCT USED FOR UNKNOWN INDICATION
     Dosage: UNK
     Route: 065
  5. FENOFIBRATE. [Suspect]
     Active Substance: FENOFIBRATE
     Indication: BLOOD TRIGLYCERIDES INCREASED
     Dosage: 1 DOSAGE FORM, EVERY 3DAY
     Route: 048
  6. FENOFIBRATE. [Suspect]
     Active Substance: FENOFIBRATE
     Dosage: 145 MILLIGRAM
     Route: 048
     Dates: start: 2007
  7. FENOFIBRATE. [Suspect]
     Active Substance: FENOFIBRATE
     Dosage: 1 DOSAGE FORM, DAILY
     Route: 048
     Dates: start: 20181223

REACTIONS (8)
  - Polymyalgia rheumatica [Not Recovered/Not Resolved]
  - Lichen planus [Not Recovered/Not Resolved]
  - Muscular weakness [Recovered/Resolved]
  - Head discomfort [Not Recovered/Not Resolved]
  - Vertigo positional [Not Recovered/Not Resolved]
  - Headache [Recovering/Resolving]
  - Intentional underdose [Unknown]
  - Tinnitus [Recovering/Resolving]

NARRATIVE: CASE EVENT DATE: 2007
